FAERS Safety Report 6213874-9 (Version None)
Quarter: 2009Q2

REPORT INFORMATION
  Report Type: 
  Country: None (occurrence: None)
  Receive Date: 20090602
  Receipt Date: 20090602
  Transmission Date: 20091009
  Serious: Yes (Death, Life-Threatening, Hospitalization, Other)
  Sender: FDA-Public Use
  Company Number: None

PATIENT
  Age: 61 Year
  Sex: Male

DRUGS (6)
  1. INSULIN GLARGINE SOLUTION FOR INJECTION [Suspect]
     Indication: DIABETES MELLITUS
     Dosage: 51 IU SC DURATION: 3 YEARS 34 WEEKS 4 DAYS
     Dates: start: 20040817, end: 20080415
  2. OPTIPEN INSULIN APPLICATOR [Suspect]
     Indication: DIABETES MELLITUS
     Dates: start: 20020201, end: 20070903
  3. METFORMIN HCL [Suspect]
     Indication: DIABETES MELLITUS
     Dosage: 850 MG
     Dates: start: 20020201, end: 20070903
  4. METFORMIN HCL [Suspect]
     Indication: DIABETES MELLITUS
     Dates: end: 20080401
  5. PLACEBO CAPSULES [Suspect]
     Dosage: PO
     Route: 048
     Dates: start: 20040817, end: 20080409
  6. AMLODIPINA [Concomitant]

REACTIONS (5)
  - BLOOD CHOLINESTERASE DECREASED [None]
  - GASTRIC HAEMORRHAGE [None]
  - GASTRITIS EROSIVE [None]
  - HEPATIC CIRRHOSIS [None]
  - HYPOALBUMINAEMIA [None]
